FAERS Safety Report 12646233 (Version 1)
Quarter: 2016Q3

REPORT INFORMATION
  Report Type: Spontaneous
  Country: US (occurrence: US)
  Receive Date: 20160811
  Receipt Date: 20160811
  Transmission Date: 20161109
  Serious: Yes (Other)
  Sender: FDA-Public Use
  Company Number: US-JNJFOC-20160802003

PATIENT
  Age: 8 Year
  Sex: Male

DRUGS (4)
  1. BENADRYL [Suspect]
     Active Substance: DIPHENHYDRAMINE HYDROCHLORIDE
     Indication: CAT SCRATCH DISEASE
     Dosage: 2-3 WEEKS AGO
     Route: 065
     Dates: start: 2016, end: 201607
  2. SAPHRIS [Suspect]
     Active Substance: ASENAPINE MALEATE
     Indication: SCHIZOPHRENIA
     Dosage: 5 MG QHS
     Route: 060
     Dates: start: 201602
  3. AUGMENTIN [Suspect]
     Active Substance: AMOXICILLIN\CLAVULANATE POTASSIUM
     Indication: CAT SCRATCH DISEASE
     Dosage: 2-3 WEEKS AGO
     Route: 048
     Dates: start: 2016, end: 201607
  4. ADDERALL [Concomitant]
     Active Substance: AMPHETAMINE ASPARTATE\AMPHETAMINE SULFATE\DEXTROAMPHETAMINE SACCHARATE\DEXTROAMPHETAMINE SULFATE
     Indication: ILL-DEFINED DISORDER
     Dosage: 20 MG AND 5 MG
     Route: 048

REACTIONS (6)
  - Therapeutic response unexpected [Unknown]
  - Intentional self-injury [Recovered/Resolved]
  - Product use issue [Unknown]
  - Abnormal behaviour [Recovered/Resolved]
  - Hallucination, auditory [Recovered/Resolved]
  - Off label use [Unknown]

NARRATIVE: CASE EVENT DATE: 2016
